FAERS Safety Report 23294107 (Version 1)
Quarter: 2023Q4

REPORT INFORMATION
  Report Type: Spontaneous
  Country: FR (occurrence: FR)
  Receive Date: 20231213
  Receipt Date: 20231213
  Transmission Date: 20240110
  Serious: Yes (Other)
  Sender: FDA-Public Use
  Company Number: None

PATIENT
  Age: 28 Year
  Sex: Female

DRUGS (1)
  1. DOXYCYCLINE [Suspect]
     Active Substance: DOXYCYCLINE
     Indication: COVID-19 immunisation
     Dosage: 100 MILLIGRAM
     Route: 048
     Dates: start: 20230222, end: 20230703

REACTIONS (1)
  - Tooth whitening [Not Recovered/Not Resolved]

NARRATIVE: CASE EVENT DATE: 20230327
